FAERS Safety Report 5759516-8 (Version None)
Quarter: 2008Q2

REPORT INFORMATION
  Report Type: 
  Country: None (occurrence: None)
  Receive Date: 20080605
  Receipt Date: 20080523
  Transmission Date: 20081010
  Serious: Yes (Hospitalization)
  Sender: FDA-Public Use
  Company Number: CA-BAYER-200711088GDS

PATIENT
  Age: 68 Year
  Sex: Male
  Weight: 46 kg

DRUGS (6)
  1. SORAFENIB [Suspect]
     Indication: RENAL CELL CARCINOMA
     Dosage: TOTAL DAILY DOSE: 400 MG  UNIT DOSE: 200 MG
     Route: 048
     Dates: start: 20060711
  2. PERINDOPRIL ERBUMINE [Concomitant]
     Indication: HYPERTENSION
     Route: 048
     Dates: start: 20060718
  3. OXYCOCET [Concomitant]
     Indication: PAIN
     Route: 048
     Dates: start: 20060615
  4. OXYCONTIN [Concomitant]
     Indication: PAIN
     Dosage: TOTAL DAILY DOSE: 20 MG
     Route: 048
     Dates: start: 20080217
  5. SYNTHROID [Concomitant]
     Indication: HYPOTHYROIDISM
     Dosage: TOTAL DAILY DOSE: 0.05 MG
     Route: 048
     Dates: start: 20080201
  6. PREVACID [Concomitant]
     Dosage: TOTAL DAILY DOSE: 30 MG
     Route: 048
     Dates: start: 20080201

REACTIONS (8)
  - CONVULSIONS LOCAL [None]
  - DISORIENTATION [None]
  - DIZZINESS [None]
  - DYSPNOEA [None]
  - FAECAL INCONTINENCE [None]
  - PNEUMONIA [None]
  - SYNCOPE [None]
  - TUNNEL VISION [None]
